FAERS Safety Report 5973941-1 (Version None)
Quarter: 2008Q4

REPORT INFORMATION
  Report Type: 
  Country: None (occurrence: None)
  Receive Date: 20081201
  Receipt Date: 20080918
  Transmission Date: 20090506
  Serious: No
  Sender: FDA-Public Use
  Company Number: US-AMGEN-KDL305931

PATIENT
  Sex: Female

DRUGS (1)
  1. ENBREL [Suspect]
     Indication: RHEUMATOID ARTHRITIS
     Route: 058
     Dates: start: 20080331

REACTIONS (9)
  - ABDOMINAL PAIN [None]
  - DYSGEUSIA [None]
  - FATIGUE [None]
  - INJECTION SITE IRRITATION [None]
  - INJECTION SITE PAIN [None]
  - OROPHARYNGEAL PAIN [None]
  - PLEURITIC PAIN [None]
  - PRODUCTIVE COUGH [None]
  - SINUSITIS [None]
